FAERS Safety Report 4775190-1 (Version None)
Quarter: 2005Q3

REPORT INFORMATION
  Report Type: 
  Country: None (occurrence: None)
  Receive Date: 20050921
  Receipt Date: 20050913
  Transmission Date: 20060218
  Serious: Yes (Death)
  Sender: FDA-Public Use
  Company Number: US-MERCK-0509USA02200

PATIENT
  Age: 52 Year

DRUGS (3)
  1. PRINIVIL [Suspect]
     Route: 048
  2. CHARCOAL, ACTIVATED [Suspect]
     Route: 048
  3. LORAZEPAM [Suspect]
     Route: 048

REACTIONS (1)
  - COMPLETED SUICIDE [None]
